FAERS Safety Report 4840394-6 (Version None)
Quarter: 2005Q4

REPORT INFORMATION
  Report Type: 
  Country: None (occurrence: None)
  Receive Date: 20051019
  Receipt Date: 20041117
  Transmission Date: 20060501
  Serious: Yes (Life-Threatening)
  Sender: FDA-Public Use
  Company Number: US_0411108372

PATIENT
  Age: 25 Year
  Sex: Male
  Weight: 127 kg

DRUGS (4)
  1. CEFACLOR [Suspect]
     Indication: BRONCHITIS
  2. STRATTERA [Suspect]
     Indication: ATTENTION DEFICIT/HYPERACTIVITY DISORDER
     Dosage: 80 MG/1 IN THE MORNING
     Dates: start: 20041011
  3. RANITIDINE [Concomitant]
  4. PAXIL [Concomitant]

REACTIONS (5)
  - ABNORMAL DREAMS [None]
  - ANAPHYLACTIC SHOCK [None]
  - DECREASED APPETITE [None]
  - HEART RATE DECREASED [None]
  - HYPOTENSION [None]
